FAERS Safety Report 25288148 (Version 1)
Quarter: 2025Q2

REPORT INFORMATION
  Report Type: Report from Study
  Country: IT (occurrence: IT)
  Receive Date: 20250509
  Receipt Date: 20250509
  Transmission Date: 20250716
  Serious: Yes (Other)
  Sender: UCB
  Company Number: IT-UCBSA-2025026796

PATIENT
  Sex: Male
  Weight: 80 kg

DRUGS (1)
  1. ROZANOLIXIZUMAB [Suspect]
     Active Substance: ROZANOLIXIZUMAB
     Indication: Myasthenia gravis

REACTIONS (2)
  - Myasthenia gravis [Unknown]
  - Product availability issue [Unknown]
